FAERS Safety Report 8545509-4 (Version None)
Quarter: 2012Q3

REPORT INFORMATION
  Report Type: 
  Country: None (occurrence: None)
  Receive Date: 20120727
  Receipt Date: 20111024
  Transmission Date: 20120928
  Serious: No
  Sender: FDA-Public Use
  Company Number: US-ASTRAZENECA-2011SE64589

PATIENT
  Age: 24 Year
  Sex: Female

DRUGS (2)
  1. SEROQUEL XR [Suspect]
     Route: 048
  2. RISPERIDONE [Concomitant]

REACTIONS (2)
  - WEIGHT INCREASED [None]
  - MATERNAL EXPOSURE DURING PREGNANCY [None]
